FAERS Safety Report 13902107 (Version 1)
Quarter: 2017Q3

REPORT INFORMATION
  Report Type: Spontaneous
  Country: US (occurrence: US)
  Receive Date: 20170824
  Receipt Date: 20170824
  Transmission Date: 20171127
  Serious: No
  Sender: FDA-Public Use
  Company Number: US-ROCHE-1130167

PATIENT
  Sex: Female

DRUGS (3)
  1. HERCEPTIN [Suspect]
     Active Substance: TRASTUZUMAB
     Indication: METASTASES TO BONE
  2. HERCEPTIN [Suspect]
     Active Substance: TRASTUZUMAB
     Indication: OVARIAN CANCER METASTATIC
     Dosage: LOADING DOSE 133 MG AND MAINTENANCE DOSE 133 MG
     Route: 065
     Dates: start: 19981109
  3. TAXOL [Concomitant]
     Active Substance: PACLITAXEL

REACTIONS (6)
  - Alopecia [Unknown]
  - Diarrhoea [Recovering/Resolving]
  - Stomatitis [Unknown]
  - Rash [Not Recovered/Not Resolved]
  - Hypoaesthesia [Unknown]
  - Decreased appetite [Unknown]
